FAERS Safety Report 4821438-4 (Version None)
Quarter: 2005Q4

REPORT INFORMATION
  Report Type: 
  Country: None (occurrence: None)
  Receive Date: 20051103
  Receipt Date: 20051028
  Transmission Date: 20060501
  Serious: Yes (Other)
  Sender: FDA-Public Use
  Company Number: USA-2005-0021624

PATIENT
  Age: 37 Year
  Sex: Male

DRUGS (1)
  1. OXYCONTIN [Suspect]
     Indication: BACK PAIN
     Dosage: NASAL
     Route: 045

REACTIONS (11)
  - DRUG ABUSER [None]
  - DRUG DEPENDENCE [None]
  - INCORRECT ROUTE OF DRUG ADMINISTRATION [None]
  - INTENTIONAL DRUG MISUSE [None]
  - NASAL CONGESTION [None]
  - NASAL NECROSIS [None]
  - NASOPHARYNGEAL REFLUX [None]
  - NOSE DEFORMITY [None]
  - POSTNASAL DRIP [None]
  - SINUSITIS [None]
  - STOMATITIS NECROTISING [None]
